FAERS Safety Report 4403213-8 (Version None)
Quarter: 2004Q3

REPORT INFORMATION
  Report Type: 
  Country: None (occurrence: None)
  Receive Date: 20040721
  Receipt Date: 20040317
  Transmission Date: 20050211
  Serious: No
  Sender: FDA-Public Use
  Company Number: US-GLAXOSMITHKLINE-A0503194A

PATIENT
  Age: 50 Year
  Sex: Female

DRUGS (9)
  1. IMITREX [Suspect]
     Indication: MIGRAINE
     Dosage: 100MG AS REQUIRED
     Route: 048
     Dates: start: 20020601
  2. PRILOSEC [Concomitant]
  3. EFFEXOR XR [Concomitant]
  4. ESTRACE [Concomitant]
  5. BROMFED PD [Concomitant]
  6. DIAZIDE [Concomitant]
  7. ZINC [Concomitant]
  8. VITAMIN B6 [Concomitant]
  9. VITAMIN E [Concomitant]

REACTIONS (1)
  - HYPOAESTHESIA [None]
